FAERS Safety Report 8070191-2 (Version None)
Quarter: 2012Q1

REPORT INFORMATION
  Report Type: 
  Country: None (occurrence: None)
  Receive Date: 20120125
  Receipt Date: 20120116
  Transmission Date: 20120608
  Serious: Yes (Death, Hospitalization, Disabling, Other)
  Sender: FDA-Public Use
  Company Number: CA-ACTELION-A-US2011-57967

PATIENT

DRUGS (10)
  1. METOLAZONE [Concomitant]
  2. PREDNISONE [Concomitant]
  3. LASIX [Concomitant]
  4. SILDENAFIL [Concomitant]
  5. TRACLEER [Suspect]
     Indication: PULMONARY ARTERIAL HYPERTENSION
     Dosage: 125 MG, BID
     Route: 048
  6. POTASSIUM CHLORIDE [Concomitant]
  7. SEPTRA [Concomitant]
  8. ADVAIR DISKUS 100/50 [Concomitant]
  9. OMEPRAZOLE [Concomitant]
  10. CITALOPRAM HYDROBROMIDE [Concomitant]

REACTIONS (4)
  - DISEASE PROGRESSION [None]
  - PULMONARY ARTERIAL HYPERTENSION [None]
  - TERMINAL STATE [None]
  - DEATH [None]
